FAERS Safety Report 7954670-1 (Version None)
Quarter: 2011Q4

REPORT INFORMATION
  Report Type: 
  Country: None (occurrence: None)
  Receive Date: 20111129
  Receipt Date: 20111121
  Transmission Date: 20120403
  Serious: Yes (Hospitalization)
  Sender: FDA-Public Use
  Company Number: IT-ACCORD-011338

PATIENT
  Age: 41 Year
  Sex: Female

DRUGS (1)
  1. GEMCITABINE [Suspect]
     Indication: LEIOMYOSARCOMA
     Dosage: 1000.00-MG/M2.4. 0 WEEKS INTRAVENOUS
     Route: 042
     Dates: start: 20080715, end: 20081007

REACTIONS (9)
  - LEFT VENTRICULAR HYPERTROPHY [None]
  - LETHARGY [None]
  - NAUSEA [None]
  - VISUAL IMPAIRMENT [None]
  - HYPERTENSION [None]
  - VOMITING [None]
  - PLATELET COUNT INCREASED [None]
  - POSTERIOR REVERSIBLE ENCEPHALOPATHY SYNDROME [None]
  - NYSTAGMUS [None]
